FAERS Safety Report 8581275-4 (Version None)
Quarter: 2012Q3

REPORT INFORMATION
  Report Type: 
  Country: None (occurrence: None)
  Receive Date: 20120809
  Receipt Date: 20120806
  Transmission Date: 20120928
  Serious: Yes (Hospitalization, Other)
  Sender: FDA-Public Use
  Company Number: PHHY2010CA31066

PATIENT
  Sex: Male

DRUGS (1)
  1. SANDOSTATIN LAR [Suspect]
     Indication: CARCINOID TUMOUR
     Dosage: 30 MG, QMO
     Route: 030
     Dates: start: 20060216

REACTIONS (9)
  - DISCOMFORT [None]
  - ABDOMINAL DISCOMFORT [None]
  - SPINAL CORD COMPRESSION [None]
  - HYPOAESTHESIA [None]
  - NEOPLASM MALIGNANT [None]
  - WEIGHT DECREASED [None]
  - GOUT [None]
  - PAIN [None]
  - OEDEMA PERIPHERAL [None]
